FAERS Safety Report 5962256-3 (Version None)
Quarter: 2008Q4

REPORT INFORMATION
  Report Type: 
  Country: None (occurrence: None)
  Receive Date: 20081121
  Receipt Date: 20081117
  Transmission Date: 20090506
  Serious: Yes (Death)
  Sender: FDA-Public Use
  Company Number: CN-ABBOTT-08P-035-0484998-00

PATIENT
  Age: 41 Year
  Weight: 39 kg

DRUGS (5)
  1. ALUVIA TABLETS 200MG/50MG [Suspect]
     Indication: ACQUIRED IMMUNODEFICIENCY SYNDROME
     Dosage: TWO TABLETS TWICE A DAY
     Route: 048
     Dates: start: 20080415, end: 20080801
  2. ALUVIA TABLETS 200MG/50MG [Suspect]
     Indication: LIVER DISORDER
  3. LAMIVUDINE [Concomitant]
     Indication: ACQUIRED IMMUNODEFICIENCY SYNDROME
     Route: 048
     Dates: start: 20080415, end: 20080801
  4. TENOFOVIR [Concomitant]
     Indication: ACQUIRED IMMUNODEFICIENCY SYNDROME
     Route: 048
     Dates: start: 20080415, end: 20080801
  5. HEPATIC PROTECTANT [Concomitant]
     Indication: LIVER DISORDER
     Route: 065
     Dates: start: 20060701, end: 20080601

REACTIONS (3)
  - ASCITES [None]
  - DIARRHOEA [None]
  - LIVER DISORDER [None]
